FAERS Safety Report 21103750 (Version 1)
Quarter: 2022Q3

REPORT INFORMATION
  Report Type: Spontaneous
  Country: US (occurrence: US)
  Receive Date: 20220720
  Receipt Date: 20220720
  Transmission Date: 20221026
  Serious: No
  Sender: FDA-Public Use
  Company Number: US-BAUSCH-BL-2022-018210

PATIENT
  Age: 59 Year
  Sex: Male
  Weight: 79.450 kg

DRUGS (1)
  1. XIFAXAN [Suspect]
     Active Substance: RIFAXIMIN
     Indication: Hepatic cirrhosis
     Route: 048

REACTIONS (3)
  - Lethargy [Unknown]
  - Intentional product use issue [Unknown]
  - Therapy interrupted [Unknown]
